FAERS Safety Report 6967065-4 (Version None)
Quarter: 2010Q3

REPORT INFORMATION
  Report Type: 
  Country: None (occurrence: None)
  Receive Date: 20100907
  Receipt Date: 20100823
  Transmission Date: 20110219
  Serious: Yes (Other)
  Sender: FDA-Public Use
  Company Number: US-ELI_LILLY_AND_COMPANY-US201008007558

PATIENT
  Sex: Female

DRUGS (12)
  1. FORTEO [Suspect]
     Dosage: 20 UG, DAILY (1/D)
  2. ABILIFY [Concomitant]
  3. NEXIUM [Concomitant]
  4. THEOPHYLLINE [Concomitant]
  5. ADVAIR DISKUS 100/50 [Concomitant]
  6. MORPHINE [Concomitant]
  7. CALCIUM [Concomitant]
  8. VITAMIN D [Concomitant]
  9. VITAMIN A [Concomitant]
  10. PROPRANOLOL [Concomitant]
  11. DILAUDID [Concomitant]
  12. SIMVASTATIN [Concomitant]

REACTIONS (16)
  - APHASIA [None]
  - BALANCE DISORDER [None]
  - DRUG TOXICITY [None]
  - DYSARTHRIA [None]
  - DYSKINESIA [None]
  - DYSSTASIA [None]
  - FALL [None]
  - FATIGUE [None]
  - INJECTION SITE PAIN [None]
  - MUSCLE SPASMS [None]
  - MUSCULAR WEAKNESS [None]
  - PAIN [None]
  - SWELLING [None]
  - TENDERNESS [None]
  - TRANSIENT ISCHAEMIC ATTACK [None]
  - TREMOR [None]
